FAERS Safety Report 9729421 (Version 1)
Quarter: 2013Q4

REPORT INFORMATION
  Report Type: Spontaneous
  Country: US (occurrence: US)
  Receive Date: 20131204
  Receipt Date: 20131204
  Transmission Date: 20140711
  Serious: No
  Sender: FDA-Public Use
  Company Number: US-GILEAD-2009-0021253

PATIENT
  Sex: Female
  Weight: 72.57 kg

DRUGS (12)
  1. LETAIRIS [Suspect]
     Indication: PULMONARY ARTERIAL HYPERTENSION
     Route: 048
     Dates: start: 20090206
  2. REVATIO [Concomitant]
  3. WARFARIN [Concomitant]
  4. SPIRINOLACTONE [Concomitant]
  5. LASIX [Concomitant]
  6. DIGOXIN [Concomitant]
  7. FLONASE [Concomitant]
  8. GABAPENTIN [Concomitant]
  9. MORPHINE [Concomitant]
  10. VITAMIN D [Concomitant]
  11. CLIMARA [Concomitant]
  12. PERCOCET [Concomitant]

REACTIONS (1)
  - Anaemia [Unknown]
